FAERS Safety Report 9645097 (Version 1)
Quarter: 2013Q4

REPORT INFORMATION
  Report Type: Report from Study
  Country: CA (occurrence: CA)
  Receive Date: 20131025
  Receipt Date: 20131025
  Transmission Date: 20140711
  Serious: Yes (Other)
  Sender: FDA-Public Use
  Company Number: CA-JNJFOC-20131011669

PATIENT
  Age: 49 Year
  Sex: Male
  Weight: 85.6 kg

DRUGS (4)
  1. REMICADE [Suspect]
     Indication: PSORIATIC ARTHROPATHY
     Route: 042
     Dates: start: 20130614
  2. SULFASALAZINE [Concomitant]
     Route: 065
  3. LEFLUNOMIDE [Concomitant]
     Route: 065
  4. ARTHROTEC [Concomitant]
     Route: 065

REACTIONS (2)
  - Dental implantation [Unknown]
  - Psoriatic arthropathy [Unknown]
